FAERS Safety Report 7220945-7 (Version None)
Quarter: 2011Q1

REPORT INFORMATION
  Report Type: 
  Country: None (occurrence: None)
  Receive Date: 20110112
  Receipt Date: 20110103
  Transmission Date: 20110831
  Serious: Yes (Hospitalization, Other)
  Sender: FDA-Public Use
  Company Number: US-ELI_LILLY_AND_COMPANY-US201002003517

PATIENT
  Sex: Female

DRUGS (7)
  1. FORTEO [Suspect]
     Indication: OSTEOPOROSIS
     Dosage: 20 UG, DAILY (1/D)
     Route: 065
     Dates: start: 20090801
  2. PAXIL [Concomitant]
     Dosage: 40 MG, DAILY (1/D)
     Route: 065
  3. FORTEO [Suspect]
     Dosage: 20 UG, DAILY (1/D)
     Route: 065
  4. FORTEO [Suspect]
     Dosage: 20 UG, DAILY (1/D)
     Route: 065
  5. DILAUDID [Concomitant]
     Dosage: 2 MG, AS NEEDED
     Route: 065
  6. FORTEO [Suspect]
     Dosage: 20 UG, DAILY (1/D)
     Route: 065
  7. METHADONE [Concomitant]
     Indication: PAIN

REACTIONS (8)
  - OSTEOMYELITIS [None]
  - PAIN IN EXTREMITY [None]
  - TENDON RUPTURE [None]
  - PAIN [None]
  - ARTHRALGIA [None]
  - BONE CYST [None]
  - POST PROCEDURAL INFECTION [None]
  - MUSCULOSKELETAL DISCOMFORT [None]
